FAERS Safety Report 6386792-3 (Version None)
Quarter: 2009Q4

REPORT INFORMATION
  Report Type: 
  Country: None (occurrence: None)
  Receive Date: 20091002
  Receipt Date: 20090925
  Transmission Date: 20100525
  Serious: Yes (Death)
  Sender: FDA-Public Use
  Company Number: B0550831A

PATIENT
  Sex: Female

DRUGS (6)
  1. ALKERAN [Suspect]
     Indication: DRUG USE FOR UNKNOWN INDICATION
     Route: 048
     Dates: start: 20070331
  2. PREDONINE [Suspect]
     Indication: DRUG USE FOR UNKNOWN INDICATION
     Route: 048
     Dates: start: 20070331
  3. ONCOVIN [Suspect]
     Indication: DRUG USE FOR UNKNOWN INDICATION
     Route: 042
     Dates: start: 20070709
  4. CYMERIN [Suspect]
     Indication: DRUG USE FOR UNKNOWN INDICATION
     Route: 042
     Dates: start: 20080709
  5. DECADRON [Suspect]
     Indication: DRUG USE FOR UNKNOWN INDICATION
     Route: 042
  6. PREDNISOLONE [Concomitant]
     Route: 048

REACTIONS (7)
  - DYSPNOEA EXERTIONAL [None]
  - ELECTROCARDIOGRAM ABNORMAL [None]
  - HEPATIC FUNCTION ABNORMAL [None]
  - HEPATIC VEIN OCCLUSION [None]
  - PULMONARY ARTERIAL HYPERTENSION [None]
  - PULMONARY VEIN OCCLUSION [None]
  - SPLENOMEGALY [None]
